FAERS Safety Report 9496522 (Version 1)
Quarter: 2013Q3

REPORT INFORMATION
  Report Type: Spontaneous
  Country: BR (occurrence: BR)
  Receive Date: 20130904
  Receipt Date: 20130904
  Transmission Date: 20140515
  Serious: Yes (Other)
  Sender: FDA-Public Use
  Company Number: PHHY2013BR096259

PATIENT
  Sex: Female

DRUGS (5)
  1. DIOVAN AMLO FIX [Suspect]
     Indication: HYPERTENSION
     Dosage: 1 DF, (160/5 MG) DAILY
     Route: 048
     Dates: start: 2012
  2. DIOVAN AMLO FIX [Suspect]
     Dosage: 1 DF, (160/5 MG) DAILY
     Route: 048
     Dates: start: 20130901, end: 20130902
  3. AAS [Concomitant]
     Dosage: 1 DF, DAILY
     Route: 048
  4. SIMVASTATIN [Concomitant]
     Indication: BLOOD CHOLESTEROL INCREASED
     Dosage: 20 MG, UNK
  5. GLIFAGE [Concomitant]
     Indication: GLUCOSE TOLERANCE IMPAIRED
     Dosage: 2 DF, (500 MG) AT NIGHT
     Route: 048

REACTIONS (9)
  - Fall [Recovered/Resolved]
  - Joint dislocation [Recovered/Resolved]
  - Swelling face [Recovered/Resolved]
  - Joint injury [Recovered/Resolved]
  - Dysuria [Recovered/Resolved]
  - Abasia [Recovering/Resolving]
  - Fluid retention [Recovered/Resolved]
  - Local swelling [Recovered/Resolved]
  - Joint swelling [Recovered/Resolved]
